FAERS Safety Report 18334030 (Version 1)
Quarter: 2020Q3

REPORT INFORMATION
  Report Type: Spontaneous
  Country: US (occurrence: US)
  Receive Date: 20200930
  Receipt Date: 20200930
  Transmission Date: 20201103
  Serious: No
  Sender: FDA-Public Use
  Company Number: None

PATIENT
  Age: 58 Year
  Sex: Female

DRUGS (1)
  1. HUMIRA [Suspect]
     Active Substance: ADALIMUMAB
     Indication: CROHN^S DISEASE
     Route: 058
     Dates: start: 20200916

REACTIONS (7)
  - Vomiting [None]
  - Frequent bowel movements [None]
  - Nausea [None]
  - Therapy interrupted [None]
  - Decreased appetite [None]
  - Insurance issue [None]
  - Abdominal distension [None]

NARRATIVE: CASE EVENT DATE: 20200923
